FAERS Safety Report 5416392-0 (Version None)
Quarter: 2007Q3

REPORT INFORMATION
  Report Type: 
  Country: None (occurrence: None)
  Receive Date: 20070816
  Receipt Date: 20070813
  Transmission Date: 20080115
  Serious: Yes (Death)
  Sender: FDA-Public Use
  Company Number: PHBS2007BR13511

PATIENT
  Age: 70 Year
  Sex: Female
  Weight: 70 kg

DRUGS (2)
  1. FORASEQ [Suspect]
  2. MESTINON [Concomitant]
     Indication: MUSCULAR WEAKNESS
     Dosage: 4 TAB/DAY
     Route: 048

REACTIONS (7)
  - CYANOSIS [None]
  - DYSPNOEA [None]
  - INTUBATION [None]
  - MUSCULAR WEAKNESS [None]
  - PNEUMONIA [None]
  - TRACHEOSTOMY [None]
  - WEIGHT DECREASED [None]
